FAERS Safety Report 5709437-1 (Version None)
Quarter: 2008Q2

REPORT INFORMATION
  Report Type: 
  Country: None (occurrence: None)
  Receive Date: 20080417
  Receipt Date: 20080417
  Transmission Date: 20081010
  Serious: Yes (Other)
  Sender: FDA-Public Use
  Company Number: None

PATIENT
  Sex: Female
  Weight: 71.2147 kg

DRUGS (1)
  1. PHENYTOIN [Suspect]
     Indication: EPILEPSY
     Dosage: TAKE 1 PO, TID
     Route: 048

REACTIONS (6)
  - AGGRESSION [None]
  - AGITATION [None]
  - DYSPLASIA [None]
  - FATIGUE [None]
  - GINGIVAL DISORDER [None]
  - TREMOR [None]
